FAERS Safety Report 23203136 (Version 1)
Quarter: 2023Q4

REPORT INFORMATION
  Report Type: Spontaneous
  Country: SE (occurrence: SE)
  Receive Date: 20231120
  Receipt Date: 20231120
  Transmission Date: 20240109
  Serious: Yes (Life-Threatening)
  Sender: FDA-Public Use
  Company Number: None

PATIENT
  Sex: Male

DRUGS (3)
  1. SAXENDA [Suspect]
     Active Substance: LIRAGLUTIDE
     Indication: Overweight
     Dosage: QD (DOSAGE AND UNITS NOT REPORTED)
     Dates: start: 20230901
  2. SAXENDA [Suspect]
     Active Substance: LIRAGLUTIDE
     Dosage: UNKNOWN (DOSE DECREASED )
  3. SILDENAFIL ACCORD [Concomitant]
     Dosage: QD (DOSAGE AND UNITS NOT REPORTED)

REACTIONS (3)
  - Asphyxia [Recovered/Resolved]
  - Paralysis [Recovered/Resolved]
  - Respiratory arrest [Recovered/Resolved]
